FAERS Safety Report 4749060-9 (Version None)
Quarter: 2005Q3

REPORT INFORMATION
  Report Type: 
  Country: None (occurrence: None)
  Receive Date: 20050817
  Receipt Date: 20050518
  Transmission Date: 20060218
  Serious: Yes (Other)
  Sender: FDA-Public Use
  Company Number: SGB1-2005-00225

PATIENT
  Sex: Male
  Weight: 70 kg

DRUGS (3)
  1. ANAGRELIDE HCL [Suspect]
     Indication: ESSENTIAL THROMBOCYTHAEMIA
     Dosage: 3MG DAILY, ORAL
     Route: 048
     Dates: start: 20041001, end: 20050408
  2. HYDREA [Concomitant]
  3. ACETYLSALICYLATE LYSINE (ACETYLSALICYLATE LYSINE) [Concomitant]

REACTIONS (5)
  - ACUTE CORONARY SYNDROME [None]
  - CORONARY ARTERY INSUFFICIENCY [None]
  - CORONARY ARTERY THROMBOSIS [None]
  - DRUG INEFFECTIVE [None]
  - PLATELET COUNT INCREASED [None]
